FAERS Safety Report 19249365 (Version 2)
Quarter: 2023Q4

REPORT INFORMATION
  Report Type: Report from Study
  Country: US (occurrence: US)
  Receive Date: 20210512
  Receipt Date: 20231009
  Transmission Date: 20240110
  Serious: Yes (Death, Other)
  Sender: FDA-Public Use
  Company Number: US-KYOWAKIRIN-2021BKK007448

PATIENT

DRUGS (2)
  1. NOURIANZ [Suspect]
     Active Substance: ISTRADEFYLLINE
     Indication: Parkinson^s disease
     Dosage: 40 MG, 1 TIME DAILY
     Route: 048
     Dates: start: 20200917
  2. NOURIANZ [Suspect]
     Active Substance: ISTRADEFYLLINE
     Dosage: 40 MG, 1 TIME DAILY
     Route: 048
     Dates: start: 202009

REACTIONS (6)
  - Death [Fatal]
  - Asthenia [Unknown]
  - Tremor [Unknown]
  - Muscle rigidity [Unknown]
  - Condition aggravated [Unknown]
  - Back pain [Unknown]

NARRATIVE: CASE EVENT DATE: 20231002
